FAERS Safety Report 6916803-5 (Version None)
Quarter: 2010Q3

REPORT INFORMATION
  Report Type: 
  Country: None (occurrence: None)
  Receive Date: 20100810
  Receipt Date: 20070815
  Transmission Date: 20110219
  Serious: No
  Sender: FDA-Public Use
  Company Number: US-PFIZER INC-2007067706

PATIENT
  Age: 77 Year
  Sex: Female

DRUGS (2)
  1. CELEBREX [Suspect]
  2. ACETAMINOPHEN [Suspect]
     Indication: PAIN
     Dosage: 650MG IN AM,650MG IN AFTERNOON, 1300MG A
     Route: 048
     Dates: start: 20070709

REACTIONS (1)
  - SOMNOLENCE [None]
